FAERS Safety Report 8259937-8 (Version None)
Quarter: 2012Q2

REPORT INFORMATION
  Report Type: 
  Country: None (occurrence: None)
  Receive Date: 20120404
  Receipt Date: 20120329
  Transmission Date: 20120825
  Serious: Yes (Other)
  Sender: FDA-Public Use
  Company Number: US-PFIZER INC-2012051321

PATIENT
  Sex: Female

DRUGS (2)
  1. LYRICA [Suspect]
     Indication: PAIN
     Dosage: 100 MG, 3X/DAY
     Route: 048
     Dates: end: 20120208
  2. NORVASC [Suspect]
     Indication: HYPERTENSION
     Dosage: 10 MG, 1X/DAY
     Route: 048
     Dates: end: 20120214

REACTIONS (3)
  - SKIN DISORDER [None]
  - JOINT SWELLING [None]
  - OEDEMA PERIPHERAL [None]
